FAERS Safety Report 7492234-7 (Version None)
Quarter: 2011Q2

REPORT INFORMATION
  Report Type: 
  Country: None (occurrence: None)
  Receive Date: 20110519
  Receipt Date: 20101207
  Transmission Date: 20111010
  Serious: No
  Sender: FDA-Public Use
  Company Number: US-NOVEN-ALL1-2010-06392

PATIENT
  Sex: Female
  Weight: 19.5 kg

DRUGS (2)
  1. DAYTRANA [Suspect]
     Indication: ATTENTION DEFICIT/HYPERACTIVITY DISORDER
     Dosage: 15 MG, 1X/DAY:QD
     Route: 062
     Dates: start: 20101124
  2. ZOLOFT [Concomitant]
     Dosage: UNK
     Dates: start: 20100930

REACTIONS (6)
  - PRODUCT QUALITY ISSUE [None]
  - RESTLESSNESS [None]
  - IMPULSIVE BEHAVIOUR [None]
  - LOGORRHOEA [None]
  - DISTURBANCE IN ATTENTION [None]
  - EMOTIONAL DISORDER [None]
